FAERS Safety Report 25533667 (Version 3)
Quarter: 2025Q3

REPORT INFORMATION
  Report Type: Spontaneous
  Country: JP (occurrence: JP)
  Receive Date: 20250709
  Receipt Date: 20250717
  Transmission Date: 20251020
  Serious: Yes (Other)
  Sender: PFIZER
  Company Number: JP-MLMSERVICE-20250627-PI557439-00177-1

PATIENT
  Age: 41 Year
  Sex: Female
  Weight: 63 kg

DRUGS (8)
  1. HYDROCORTISONE [Suspect]
     Active Substance: HYDROCORTISONE
     Indication: Lymphocytic hypophysitis
     Dosage: 15 MG, 1X/DAY (12 MONTHS AFTER DELIVERY)
  2. HYDROCORTISONE [Suspect]
     Active Substance: HYDROCORTISONE
     Dosage: 15 MG, 1X/DAY (13.5 MONTHS AFTER DELIVERY)
  3. HYDROCORTISONE [Suspect]
     Active Substance: HYDROCORTISONE
     Dosage: 5 MG, 1X/DAY (GRADUALLY TAPERED DOWN) (16 MONTHS AFTER DELIVERY)
  4. PREDNISOLONE [Suspect]
     Active Substance: PREDNISOLONE
     Indication: Lymphocytic hypophysitis
     Dosage: 60 MG, 1X/DAY
     Route: 048
  5. PREDNISOLONE [Suspect]
     Active Substance: PREDNISOLONE
     Dosage: 5 MG, DAILY (DOSE REDUCED)
     Route: 048
  6. PREDNISOLONE [Suspect]
     Active Substance: PREDNISOLONE
     Dosage: 30 MG, 1X/DAY (1 MONTH AFTER DELIVERY)
     Route: 048
  7. PREDNISOLONE [Suspect]
     Active Substance: PREDNISOLONE
     Dosage: 10 MG, 1X/DAY (3 MONTHS AFTER DELIVERY)
     Route: 048
  8. PREDNISOLONE [Suspect]
     Active Substance: PREDNISOLONE
     Route: 048

REACTIONS (4)
  - Hyperthyroidism [Recovered/Resolved]
  - Graves^ disease [Recovered/Resolved]
  - Off label use [Unknown]
  - Drug effective for unapproved indication [Unknown]
